FAERS Safety Report 15150019 (Version 2)
Quarter: 2018Q3

REPORT INFORMATION
  Report Type: Spontaneous
  Country: CA (occurrence: CA)
  Receive Date: 20180716
  Receipt Date: 20180810
  Transmission Date: 20181010
  Serious: Yes (Other)
  Sender: FDA-Public Use
  Company Number: CA-PFIZER INC-2018281566

PATIENT
  Sex: Female

DRUGS (3)
  1. ADVIL MUSCLE AND JOINT [Suspect]
     Active Substance: IBUPROFEN
     Dosage: UNK
     Dates: start: 2018
  2. ADVIL [Suspect]
     Active Substance: IBUPROFEN
     Dosage: UNK
  3. ADVIL [Suspect]
     Active Substance: IBUPROFEN
     Indication: PAIN
     Dosage: UNK
     Dates: start: 2018

REACTIONS (14)
  - Acute kidney injury [Unknown]
  - Incorrect drug administration duration [Unknown]
  - Vision blurred [Unknown]
  - Dizziness [Unknown]
  - Decreased appetite [Unknown]
  - Product label issue [Unknown]
  - Pain [Unknown]
  - Mental impairment [Unknown]
  - Pyrexia [Unknown]
  - Tubulointerstitial nephritis [Unknown]
  - Nausea [Unknown]
  - Dysgeusia [Unknown]
  - Influenza [Unknown]
  - Back pain [Unknown]

NARRATIVE: CASE EVENT DATE: 2018
